FAERS Safety Report 4961795-1 (Version None)
Quarter: 2006Q2

REPORT INFORMATION
  Report Type: 
  Country: None (occurrence: None)
  Receive Date: 20060404
  Receipt Date: 20060317
  Transmission Date: 20061013
  Serious: Yes (Death, Life-Threatening)
  Sender: FDA-Public Use
  Company Number: CA-NOVOPROD-251871

PATIENT
  Age: 47 Year
  Sex: Male
  Weight: 92 kg

DRUGS (12)
  1. LOZIDE [Concomitant]
     Dosage: 2.5 MG, UNK
  2. ALTACE [Concomitant]
     Dosage: 10 MG, UNK
  3. ADALAT [Concomitant]
     Dosage: 60 MG, UNK
  4. BISOPROLOL [Concomitant]
     Dosage: 5 MG, UNK
  5. LIPITOR [Concomitant]
     Dosage: 20 MG, UNK
  6. PANTOPRAZOLE [Concomitant]
     Dosage: 40 MG, UNK
  7. NITROLINGUAL [Concomitant]
     Dosage: .4 MG, UNK
     Route: 055
  8. LIPITOR [Concomitant]
     Dosage: 40 MG, UNK
  9. METFORMIN [Concomitant]
     Dosage: 500 MG, UNK
  10. ACETYLSALICYLIC ACID SRT [Concomitant]
     Dosage: 80 MG, UNK
  11. NOVOLIN GE NPH [Suspect]
     Indication: INSULIN-REQUIRING TYPE II DIABETES MELLITUS
  12. NOVORAPID [Suspect]
     Indication: INSULIN-REQUIRING TYPE II DIABETES MELLITUS

REACTIONS (1)
  - DEATH [None]
